FAERS Safety Report 4538386-X (Version None)
Quarter: 2004Q4

REPORT INFORMATION
  Report Type: 
  Country: None (occurrence: None)
  Receive Date: 20041221
  Receipt Date: 20041210
  Transmission Date: 20050328
  Serious: No
  Sender: FDA-Public Use
  Company Number: 04H-114-0283154-00

PATIENT

DRUGS (1)
  1. DOBUTAMINE HCL [Suspect]
     Indication: NUCLEAR MAGNETIC RESONANCE IMAGING THORACIC

REACTIONS (3)
  - BRADYCARDIA [None]
  - CHEST PAIN [None]
  - HYPOTENSION [None]
